FAERS Safety Report 7607262-8 (Version None)
Quarter: 2011Q3

REPORT INFORMATION
  Report Type: 
  Country: None (occurrence: None)
  Receive Date: 20110712
  Receipt Date: 20110712
  Transmission Date: 20111222
  Serious: Yes (Other)
  Sender: FDA-Public Use
  Company Number: None

PATIENT
  Age: 24 Year
  Sex: Male
  Weight: 97.5234 kg

DRUGS (1)
  1. PROPECIA [Suspect]
     Indication: ANDROGENETIC ALOPECIA
     Dosage: 1MG #1 PER DAY PO
     Route: 048
     Dates: start: 20100122, end: 20100226

REACTIONS (10)
  - MUSCLE ATROPHY [None]
  - EMOTIONAL DISORDER [None]
  - MEMORY IMPAIRMENT [None]
  - SLEEP DISORDER [None]
  - SEXUAL DYSFUNCTION [None]
  - DEPRESSION [None]
  - COGNITIVE DISORDER [None]
  - SOCIAL PROBLEM [None]
  - ANXIETY [None]
  - CONFUSIONAL STATE [None]
